FAERS Safety Report 14721972 (Version 1)
Quarter: 2018Q2

REPORT INFORMATION
  Report Type: Spontaneous
  Country: US (occurrence: US)
  Receive Date: 20180405
  Receipt Date: 20180405
  Transmission Date: 20180711
  Serious: No
  Sender: FDA-Public Use
  Company Number: US-SA-2018SA095627

PATIENT
  Sex: Female

DRUGS (5)
  1. CO FLUOCIN [Concomitant]
     Route: 065
  2. DUPIXENT [Suspect]
     Active Substance: DUPILUMAB
     Indication: DERMATITIS ATOPIC
     Route: 058
     Dates: start: 20171108
  3. TACROLIMUS. [Concomitant]
     Active Substance: TACROLIMUS
     Route: 065
  4. FEXOFENADINE [Concomitant]
     Active Substance: FEXOFENADINE\FEXOFENADINE HYDROCHLORIDE
     Route: 065
  5. MOMETASONE [Concomitant]
     Active Substance: MOMETASONE
     Route: 065

REACTIONS (1)
  - Exposure during pregnancy [Unknown]
